FAERS Safety Report 20160917 (Version 13)
Quarter: 2023Q4

REPORT INFORMATION
  Report Type: Other
  Country: DE (occurrence: None)
  Receive Date: 20211208
  Receipt Date: 20231205
  Transmission Date: 20240110
  Serious: No
  Sender: FDA-Public Use
  Company Number: DE-ROCHE-2726417

PATIENT
  Age: 35 Year
  Sex: Female
  Weight: 144.4 kg

DRUGS (7)
  1. OCREVUS [Suspect]
     Active Substance: OCRELIZUMAB
     Indication: Relapsing-remitting multiple sclerosis
     Dosage: 600 MG 196 DAYS
     Route: 042
     Dates: start: 20201106, end: 20201120
  2. OCREVUS [Suspect]
     Active Substance: OCRELIZUMAB
     Dosage: SUBSEQUENT DOSE OF OCRELIZUMAB: 24/NOV/2023
     Route: 042
     Dates: start: 20210604
  3. ASTRAZENECA COVID-19 VACCINE [Suspect]
     Active Substance: AZD-1222
     Indication: COVID-19 prophylaxis
     Route: 065
     Dates: start: 20210304
  4. PFIZER-BIONTECH COVID-19 VACCINE [Suspect]
     Active Substance: TOZINAMERAN
     Indication: COVID-19 prophylaxis
     Route: 065
  5. VITAMIN D3 [Concomitant]
     Active Substance: CHOLECALCIFEROL
  6. CLARITHROMYCIN [Concomitant]
     Active Substance: CLARITHROMYCIN
  7. LEVOTHYROXINE SODIUM\POTASSIUM IODIDE [Concomitant]
     Active Substance: LEVOTHYROXINE SODIUM\POTASSIUM IODIDE
     Dosage: 135 MICROGRAMS (1-0-0)

REACTIONS (30)
  - Headache [Recovered/Resolved]
  - Blood pressure increased [Recovered/Resolved]
  - Fatigue [Recovered/Resolved]
  - Weight increased [Not Recovered/Not Resolved]
  - Sinusitis [Recovered/Resolved]
  - Bronchitis [Recovered/Resolved]
  - Pain in extremity [Recovered/Resolved]
  - Feeling of body temperature change [Recovered/Resolved]
  - Drug ineffective [Unknown]
  - Nausea [Recovered/Resolved]
  - Nasopharyngitis [Recovered/Resolved]
  - Pyrexia [Recovered/Resolved]
  - Lymphoedema [Not Recovered/Not Resolved]
  - COVID-19 [Recovered/Resolved]
  - Oropharyngeal pain [Recovered/Resolved]
  - Oral herpes [Recovered/Resolved]
  - Contusion [Recovered/Resolved]
  - Muscle strain [Recovered/Resolved]
  - Carpal tunnel syndrome [Recovered/Resolved]
  - Accident at work [Unknown]
  - Pustule [Recovered/Resolved]
  - Insulin resistance [Recovered/Resolved]
  - Polycystic ovarian syndrome [Not Recovered/Not Resolved]
  - Fall [Unknown]
  - Haemarthrosis [Recovered/Resolved]
  - Fibula fracture [Not Recovered/Not Resolved]
  - Ligament rupture [Not Recovered/Not Resolved]
  - Hypotension [Not Recovered/Not Resolved]
  - Paraesthesia [Recovering/Resolving]
  - Headache [Not Recovered/Not Resolved]

NARRATIVE: CASE EVENT DATE: 20201106
